FAERS Safety Report 7531282-5 (Version None)
Quarter: 2011Q2

REPORT INFORMATION
  Report Type: 
  Country: None (occurrence: None)
  Receive Date: 20110608
  Receipt Date: 20110602
  Transmission Date: 20111010
  Serious: Yes (Hospitalization)
  Sender: FDA-Public Use
  Company Number: GB-JNJFOC-20071005529

PATIENT
  Age: 76 Year
  Sex: Female

DRUGS (4)
  1. CALCIUM CARBONATE [Suspect]
     Indication: DYSPEPSIA
     Dosage: DAILY FOR TWO YEARS
     Route: 048
  2. CALCIUM CHANNEL BLOCKER [Concomitant]
     Indication: HYPERTENSION
  3. IBUPROFEN [Suspect]
     Indication: OSTEOARTHRITIS
  4. SALBUTAMOL INHALER [Concomitant]
     Indication: CHRONIC OBSTRUCTIVE PULMONARY DISEASE
     Route: 055

REACTIONS (10)
  - CHANGE OF BOWEL HABIT [None]
  - DIARRHOEA [None]
  - MILK-ALKALI SYNDROME [None]
  - HYPERCALCAEMIA [None]
  - DYSPEPSIA [None]
  - GASTRITIS EROSIVE [None]
  - NOCTURIA [None]
  - POLYURIA [None]
  - CONSTIPATION [None]
  - POLYDIPSIA [None]
